FAERS Safety Report 13885157 (Version 2)
Quarter: 2018Q2

REPORT INFORMATION
  Report Type: Spontaneous
  Country: US (occurrence: US)
  Receive Date: 20170821
  Receipt Date: 20180430
  Transmission Date: 20180711
  Serious: No
  Sender: FDA-Public Use
  Company Number: US-LEXICON PHARMACEUTICALS, INC-17-1606-00589

PATIENT
  Sex: Female
  Weight: 70.19 kg

DRUGS (21)
  1. ATORVASTATIN [Concomitant]
     Active Substance: ATORVASTATIN
  2. MULTIVITAMIN [Concomitant]
     Active Substance: VITAMINS
  3. TELOTRISTAT ETHYL [Suspect]
     Active Substance: TELOTRISTAT ETHYL
     Indication: DIARRHOEA
  4. FLEXERIL [Concomitant]
     Active Substance: CYCLOBENZAPRINE HYDROCHLORIDE
  5. NORCO [Concomitant]
     Active Substance: ACETAMINOPHEN\HYDROCODONE BITARTRATE
  6. XARELTO [Concomitant]
     Active Substance: RIVAROXABAN
  7. LASIX [Concomitant]
     Active Substance: FUROSEMIDE
  8. LIDOCAINE. [Concomitant]
     Active Substance: LIDOCAINE
  9. TENORMIN [Concomitant]
     Active Substance: ATENOLOL
  10. TELOTRISTAT ETHYL [Suspect]
     Active Substance: TELOTRISTAT ETHYL
     Indication: CARCINOID TUMOUR OF THE CAECUM
     Route: 048
     Dates: start: 20170620, end: 201712
  11. PEPCID [Concomitant]
     Active Substance: FAMOTIDINE
  12. POTASSIUM CHLORIDE. [Concomitant]
     Active Substance: POTASSIUM CHLORIDE
  13. TELOTRISTAT ETHYL [Suspect]
     Active Substance: TELOTRISTAT ETHYL
     Indication: FLATULENCE
  14. FENTANYL. [Concomitant]
     Active Substance: FENTANYL
  15. AMBIEN [Concomitant]
     Active Substance: ZOLPIDEM TARTRATE
  16. METHOTREXATE. [Concomitant]
     Active Substance: METHOTREXATE
  17. PREDNISONE. [Concomitant]
     Active Substance: PREDNISONE
  18. REQUIP [Concomitant]
     Active Substance: ROPINIROLE HYDROCHLORIDE
  19. SANDOSTATIN [Concomitant]
     Active Substance: OCTREOTIDE ACETATE
     Route: 030
     Dates: start: 20170526
  20. NAMBUTONE [Concomitant]
  21. LOMOTIL [Concomitant]
     Active Substance: ATROPINE SULFATE\DIPHENOXYLATE HYDROCHLORIDE
     Indication: DIARRHOEA
     Dosage: 2.5/0.025 MG
     Route: 048
     Dates: start: 201705, end: 201707

REACTIONS (1)
  - Drug ineffective [Unknown]

NARRATIVE: CASE EVENT DATE: 2017
